FAERS Safety Report 22648151 (Version 1)
Quarter: 2023Q2

REPORT INFORMATION
  Report Type: Spontaneous
  Country: CA (occurrence: None)
  Receive Date: 20230628
  Receipt Date: 20230628
  Transmission Date: 20230722
  Serious: Yes (Death)
  Sender: FDA-Public Use
  Company Number: CA-ROCHE-3376815

PATIENT
  Age: 74 Year
  Sex: Female

DRUGS (4)
  1. RITUXIMAB [Suspect]
     Active Substance: RITUXIMAB
     Indication: Rheumatoid arthritis
     Route: 041
  2. DIPHENHYDRAMINE [Concomitant]
     Active Substance: DIPHENHYDRAMINE
     Route: 048
  3. METHYLPREDNISOLONE [Concomitant]
     Active Substance: METHYLPREDNISOLONE
     Route: 042
  4. SODIUM CHLORIDE [Concomitant]
     Active Substance: SODIUM CHLORIDE

REACTIONS (18)
  - Back pain [Fatal]
  - Bone pain [Fatal]
  - Cough [Fatal]
  - Diarrhoea [Fatal]
  - Fatigue [Fatal]
  - Feeling cold [Fatal]
  - Feeling hot [Fatal]
  - Headache [Fatal]
  - Hypoaesthesia [Fatal]
  - Illness [Fatal]
  - Influenza [Fatal]
  - Pain [Fatal]
  - Peripheral swelling [Fatal]
  - Pyrexia [Fatal]
  - Skin discolouration [Fatal]
  - Sneezing [Fatal]
  - Throat irritation [Fatal]
  - Vomiting [Fatal]
